FAERS Safety Report 7402658-1 (Version None)
Quarter: 2011Q1

REPORT INFORMATION
  Report Type: 
  Country: None (occurrence: None)
  Receive Date: 20110331
  Receipt Date: 20110315
  Transmission Date: 20110831
  Serious: Yes (Hospitalization, Other)
  Sender: FDA-Public Use
  Company Number: LMI-2011-00188

PATIENT
  Age: 81 Year
  Sex: Female
  Weight: 70 kg

DRUGS (14)
  1. OMEPRAZOLE [Concomitant]
  2. ACETYLCYSTEINE [Concomitant]
  3. FLUVASTATIN SODIUM [Concomitant]
  4. METFORMIN HCL [Concomitant]
  5. CLOPIDOGREL [Concomitant]
  6. SALBUTAMOL-VENTOLIN (ALL OTHER THERAPEUTIC PRODUCTS) [Concomitant]
  7. FUROSEMIDE [Concomitant]
  8. NITROGLYCERIN [Concomitant]
  9. CARDIOLITE [Suspect]
     Indication: SCAN MYOCARDIAL PERFUSION
     Dosage: 16.40 MCI IN A VOLUME OF 3 ML
     Dates: start: 20110201, end: 20110201
  10. ATROVENT [Concomitant]
  11. DUPHALAC [Concomitant]
  12. KILOR (FERRITIN) [Concomitant]
  13. PARACETAMOL (PARACETAMOL) [Concomitant]
  14. ATACAND HCT [Concomitant]

REACTIONS (13)
  - HYPOKALAEMIA [None]
  - ATRIAL FIBRILLATION [None]
  - CARDIAC FLUTTER [None]
  - HYPERACUSIS [None]
  - NOSOCOMIAL INFECTION [None]
  - NASAL MUCOSAL DISORDER [None]
  - CONDITION AGGRAVATED [None]
  - EXCORIATION [None]
  - ORGANISING PNEUMONIA [None]
  - DIABETES MELLITUS [None]
  - TOXIC EPIDERMAL NECROLYSIS [None]
  - CARDIAC FAILURE CONGESTIVE [None]
  - RESPIRATORY FAILURE [None]
